FAERS Safety Report 8885614 (Version 1)
Quarter: 2012Q4

REPORT INFORMATION
  Report Type: 
  Country: MX (occurrence: MX)
  Receive Date: 20121102
  Receipt Date: 20121102
  Transmission Date: 20130627
  Serious: Yes (Other)
  Sender: FDA-Public Use
  Company Number: MX-JNJFOC-20121013890

PATIENT
  Sex: Female

DRUGS (9)
  1. DOXORUBICIN HYDROCHLORIDE (DOXIL) [Suspect]
     Indication: HAEMATOLOGICAL MALIGNANCY
     Route: 042
  2. ADRIAMYCIN [Suspect]
     Indication: HAEMATOLOGICAL MALIGNANCY
     Route: 065
  3. CYCLOPHOSPHAMIDE [Suspect]
     Indication: HAEMATOLOGICAL MALIGNANCY
     Route: 065
  4. VINCRISTINE [Suspect]
     Indication: HAEMATOLOGICAL MALIGNANCY
     Route: 065
  5. PREDNISONE [Suspect]
     Indication: HAEMATOLOGICAL MALIGNANCY
     Route: 065
  6. RITUXIMAB [Suspect]
     Indication: HAEMATOLOGICAL MALIGNANCY
     Route: 065
  7. ARA C [Suspect]
     Indication: HAEMATOLOGICAL MALIGNANCY
     Route: 065
  8. ANTHRACYCLINE [Suspect]
     Indication: HAEMATOLOGICAL MALIGNANCY
     Route: 065
  9. CHEMOTHERAPY [Suspect]
     Indication: HAEMATOLOGICAL MALIGNANCY
     Route: 065

REACTIONS (4)
  - Foetal death [Unknown]
  - Exposure during pregnancy [Unknown]
  - Maternal exposure during pregnancy [None]
  - Abortion spontaneous [None]
